FAERS Safety Report 4396077-2 (Version None)
Quarter: 2004Q3

REPORT INFORMATION
  Report Type: 
  Country: None (occurrence: None)
  Receive Date: 20040708
  Receipt Date: 20040622
  Transmission Date: 20050211
  Serious: Yes (Hospitalization)
  Sender: FDA-Public Use
  Company Number: US013354

PATIENT
  Age: 51 Year
  Sex: Female

DRUGS (14)
  1. GABITRIL [Suspect]
     Indication: MENTAL DISORDER
     Dosage: 2 MG QD ORAL
     Route: 048
     Dates: start: 20040501
  2. GABITRIL [Suspect]
     Indication: MENTAL DISORDER
     Dosage: 4 MG QD ORAL
     Route: 048
  3. GABITRIL [Suspect]
     Indication: MENTAL DISORDER
     Dosage: 6 MG QD ORAL
     Route: 048
  4. GABITRIL [Suspect]
     Indication: MENTAL DISORDER
     Dosage: 8 MG QD ORAL
     Route: 048
  5. GABITRIL [Suspect]
     Indication: MENTAL DISORDER
     Dosage: 12 MG QD ORAL
     Route: 048
  6. GABITRIL [Suspect]
     Indication: MENTAL DISORDER
     Dosage: 16 MG QD ORAL
     Route: 048
     Dates: end: 20040601
  7. SEROQUEL [Suspect]
     Dosage: 800 MG QD ORAL
     Route: 048
  8. ZYPREXA [Concomitant]
  9. REMERON [Concomitant]
  10. CELEXA [Concomitant]
  11. BUSPAR [Concomitant]
  12. COUMADIN [Concomitant]
  13. LAMICTAL [Concomitant]
  14. DIABETIC MEDICATION [Concomitant]

REACTIONS (4)
  - CONFUSIONAL STATE [None]
  - DRUG INTERACTION [None]
  - FLASHBACK [None]
  - POST-TRAUMATIC STRESS DISORDER [None]
